FAERS Safety Report 8229035-8 (Version None)
Quarter: 2012Q1

REPORT INFORMATION
  Report Type: 
  Country: None (occurrence: None)
  Receive Date: 20120322
  Receipt Date: 20120315
  Transmission Date: 20120608
  Serious: Yes (Hospitalization, Disabling, Other)
  Sender: FDA-Public Use
  Company Number: US-MERCK-1105USA03913

PATIENT
  Age: 64 Year
  Sex: Female
  Weight: 64 kg

DRUGS (2)
  1. FOSAMAX [Suspect]
     Indication: OSTEOPOROSIS
     Route: 048
     Dates: start: 19940101, end: 20060401
  2. FOSAMAX [Suspect]
     Indication: OSTEOPENIA
     Route: 048
     Dates: start: 19940101, end: 20060401

REACTIONS (47)
  - DEPRESSION [None]
  - HYPOTHYROIDISM [None]
  - STRESS [None]
  - BLOOD CHOLESTEROL INCREASED [None]
  - OSTEONECROSIS OF JAW [None]
  - CATARACT [None]
  - ARTHRALGIA [None]
  - LICHENOID KERATOSIS [None]
  - PNEUMONIA [None]
  - PERIODONTAL DISEASE [None]
  - OBESITY [None]
  - HORMONE LEVEL ABNORMAL [None]
  - HEADACHE [None]
  - GASTROINTESTINAL DISORDER [None]
  - JOINT SWELLING [None]
  - ANXIETY [None]
  - EDENTULOUS [None]
  - NEURALGIA [None]
  - ESSENTIAL HYPERTENSION [None]
  - GASTROOESOPHAGEAL REFLUX DISEASE [None]
  - PERIODONTITIS [None]
  - HYPERTENSION [None]
  - TYPE 2 DIABETES MELLITUS [None]
  - HERPES ZOSTER [None]
  - ALOPECIA [None]
  - BONE LOSS [None]
  - EXOSTOSIS [None]
  - ORAL DISORDER [None]
  - ORAL INFECTION [None]
  - VERTIGO [None]
  - INSOMNIA [None]
  - CARPAL TUNNEL SYNDROME [None]
  - BRONCHITIS CHRONIC [None]
  - ABSCESS ORAL [None]
  - CHRONIC OBSTRUCTIVE PULMONARY DISEASE [None]
  - FISTULA [None]
  - EAR PAIN [None]
  - DENTAL CARIES [None]
  - HYPOXIA [None]
  - TOOTH DISORDER [None]
  - GINGIVAL DISORDER [None]
  - GINGIVAL BLEEDING [None]
  - BRONCHOPNEUMONIA [None]
  - CHRONIC SINUSITIS [None]
  - ARTHRITIS [None]
  - BONE PAIN [None]
  - BRONCHITIS [None]
